FAERS Safety Report 20776949 (Version 1)
Quarter: 2022Q2

REPORT INFORMATION
  Report Type: Spontaneous
  Country: NL (occurrence: NL)
  Receive Date: 20220502
  Receipt Date: 20220502
  Transmission Date: 20220721
  Serious: Yes (Hospitalization, Other)
  Sender: FDA-Public Use
  Company Number: NL-ROCHE-3021499

PATIENT
  Age: 65 Year
  Sex: Female

DRUGS (4)
  1. BEVACIZUMAB [Suspect]
     Active Substance: BEVACIZUMAB
     Indication: Colorectal cancer metastatic
     Dosage: 7.5 MILLIGRAM/KILOGRAM, Q3WK
     Route: 042
     Dates: start: 20210928
  2. OXALIPLATIN [Suspect]
     Active Substance: OXALIPLATIN
     Indication: Colorectal cancer metastatic
     Dosage: 130 MILLIGRAM/SQ. METER, Q3WK
     Route: 042
     Dates: start: 20210928
  3. CAPECITABINE [Suspect]
     Active Substance: CAPECITABINE
     Indication: Colorectal cancer metastatic
     Dosage: 1000 MILLIGRAM/SQ. METER (CONSECUTIVE DATE OF TREATMENT: 06/DEC/2021)
     Route: 048
     Dates: start: 20210928
  4. CAPOX B [Concomitant]
     Route: 065

REACTIONS (2)
  - Anastomotic leak [Recovering/Resolving]
  - Impaired gastric emptying [Recovered/Resolved]

NARRATIVE: CASE EVENT DATE: 20220203
